FAERS Safety Report 13706032 (Version 1)
Quarter: 2017Q2

REPORT INFORMATION
  Report Type: Report from Study
  Country: US (occurrence: US)
  Receive Date: 20170630
  Receipt Date: 20170630
  Transmission Date: 20170830
  Serious: Yes (Hospitalization, Other)
  Sender: FDA-Public Use
  Company Number: US-GILEAD-2017-0275119

PATIENT
  Age: 49 Year
  Sex: Male

DRUGS (3)
  1. AMBRISENTAN [Suspect]
     Active Substance: AMBRISENTAN
     Dosage: 10 MG, QD
     Route: 065
  2. AMBRISENTAN [Suspect]
     Active Substance: AMBRISENTAN
     Indication: PRODUCT USED FOR UNKNOWN INDICATION
     Dosage: 5 MG, QD
     Route: 065
  3. ELIQUIS [Concomitant]
     Active Substance: APIXABAN

REACTIONS (5)
  - Oedema peripheral [Unknown]
  - Fluid retention [Not Recovered/Not Resolved]
  - Atrial fibrillation [Unknown]
  - Pleural effusion [Unknown]
  - Condition aggravated [Not Recovered/Not Resolved]
